FAERS Safety Report 24009782 (Version 3)
Quarter: 2025Q1

REPORT INFORMATION
  Report Type: Spontaneous
  Country: PA (occurrence: PA)
  Receive Date: 20240625
  Receipt Date: 20250113
  Transmission Date: 20250409
  Serious: No
  Sender: PFIZER
  Company Number: PA-PFIZER INC-PV202400076538

PATIENT
  Age: 13 Year
  Sex: Male

DRUGS (1)
  1. GENOTROPIN [Suspect]
     Active Substance: SOMATROPIN
     Dosage: 3 MG, DAILY

REACTIONS (2)
  - Device use error [Unknown]
  - Device leakage [Unknown]
